FAERS Safety Report 10273749 (Version 1)
Quarter: 2014Q3

REPORT INFORMATION
  Report Type: Spontaneous
  Country: VE (occurrence: VE)
  Receive Date: 20140702
  Receipt Date: 20140702
  Transmission Date: 20150326
  Serious: Yes (Hospitalization)
  Sender: FDA-Public Use
  Company Number: PHHY2014VE081546

PATIENT
  Sex: Male

DRUGS (3)
  1. CENTRUM [Concomitant]
     Active Substance: VITAMINS
     Dosage: UNK UKN, UNK
  2. DIOVAN [Suspect]
     Active Substance: VALSARTAN
     Indication: HYPERTENSION
     Dosage: 160 MG, DAILY
     Route: 048
  3. ENSURE [Concomitant]
     Active Substance: AMINO ACIDS\DEXTROSE\ELECTROLYTES NOS\SOYBEAN OIL\VITAMINS
     Dosage: UNK UKN, UNK

REACTIONS (2)
  - Injury [Recovered/Resolved]
  - Tracheal cancer [Recovered/Resolved]

NARRATIVE: CASE EVENT DATE: 2012
